FAERS Safety Report 7800845-1 (Version None)
Quarter: 2011Q4

REPORT INFORMATION
  Report Type: 
  Country: None (occurrence: None)
  Receive Date: 20111006
  Receipt Date: 20111003
  Transmission Date: 20120403
  Serious: Yes (Other)
  Sender: FDA-Public Use
  Company Number: US-AMGEN-USACT2011050997

PATIENT
  Sex: Male
  Weight: 90.72 kg

DRUGS (3)
  1. CISPLATIN [Concomitant]
     Indication: OESOPHAGEAL ADENOCARCINOMA
     Dosage: 40 MG/M2, Q2WK
     Route: 042
     Dates: start: 20110627
  2. PANITUMUMAB [Suspect]
     Indication: OESOPHAGEAL ADENOCARCINOMA
     Dosage: 6 MG/KG, Q2WK
     Route: 042
     Dates: start: 20110627
  3. DOCETAXEL [Concomitant]
     Indication: OESOPHAGEAL ADENOCARCINOMA
     Dosage: 40 MG/M2, Q2WK
     Route: 042
     Dates: start: 20110627

REACTIONS (1)
  - HYPOALBUMINAEMIA [None]
